FAERS Safety Report 8329807-5 (Version None)
Quarter: 2012Q2

REPORT INFORMATION
  Report Type: 
  Country: None (occurrence: None)
  Receive Date: 20120502
  Receipt Date: 20091103
  Transmission Date: 20120825
  Serious: No
  Sender: FDA-Public Use
  Company Number: US-TEVA-2009012132

PATIENT
  Sex: Female
  Weight: 63.56 kg

DRUGS (8)
  1. AMITIZA [Concomitant]
     Dates: start: 20070101
  2. EFFEXOR XR [Concomitant]
     Dates: start: 20040101
  3. BUSPAR [Concomitant]
     Dates: start: 20040101
  4. BACLOFEN [Concomitant]
     Dates: start: 20081201
  5. BETASERON [Concomitant]
     Dates: start: 20030101
  6. NUVIGIL [Suspect]
     Indication: FATIGUE
     Route: 048
     Dates: start: 20090901, end: 20090901
  7. TOPAMAX [Concomitant]
     Dates: start: 20030101
  8. MORPHINE PUMP [Concomitant]

REACTIONS (1)
  - DRY MOUTH [None]
